FAERS Safety Report 17092307 (Version 2)
Quarter: 2020Q2

REPORT INFORMATION
  Report Type: Report from Study
  Country: FR (occurrence: FR)
  Receive Date: 20191129
  Receipt Date: 20200428
  Transmission Date: 20200713
  Serious: Yes (Death, Hospitalization, Other)
  Sender: FDA-Public Use
  Company Number: FR-PFIZER INC-2019513304

PATIENT

DRUGS (13)
  1. ZYVOXID [Suspect]
     Active Substance: LINEZOLID
     Dosage: 1200 MG, UNK
     Route: 042
     Dates: start: 20180322
  2. MERONEM [Suspect]
     Active Substance: MEROPENEM
     Indication: FEBRILE BONE MARROW APLASIA
     Dosage: 3 G, UNK
     Route: 042
     Dates: start: 20180322
  3. TEPADINA [Concomitant]
     Active Substance: THIOTEPA
  4. CYCLOPHOSPHAMIDE. [Concomitant]
     Active Substance: CYCLOPHOSPHAMIDE
     Indication: BONE MARROW CONDITIONING REGIMEN
  5. THIOTEPA. [Concomitant]
     Active Substance: THIOTEPA
     Indication: BONE MARROW CONDITIONING REGIMEN
     Dosage: 10 MG/KG  X 5 MG/KG
  6. CICLOSPORIN [Concomitant]
     Active Substance: CYCLOSPORINE
     Indication: PROPHYLAXIS
  7. TACROLIMUS. [Concomitant]
     Active Substance: TACROLIMUS
     Indication: PROPHYLAXIS
  8. CYTARABINE. [Concomitant]
     Active Substance: CYTARABINE
  9. DEFITELIO [Suspect]
     Active Substance: DEFIBROTIDE SODIUM
     Indication: PROPHYLAXIS
     Dosage: 21 MG/KG, DAILY
     Route: 065
     Dates: start: 20180307, end: 20180323
  10. MYCOPHENOLATE MOFETIL. [Concomitant]
     Active Substance: MYCOPHENOLATE MOFETIL
     Indication: PROPHYLAXIS
  11. DEFITELIO [Suspect]
     Active Substance: DEFIBROTIDE SODIUM
     Indication: VENOOCCLUSIVE DISEASE
  12. FLUDARABINE [Concomitant]
     Active Substance: FLUDARABINE PHOSPHATE
     Indication: BONE MARROW CONDITIONING REGIMEN
     Dosage: 120 MG/M 2
  13. BUSULFAN. [Concomitant]
     Active Substance: BUSULFAN
     Indication: BONE MARROW CONDITIONING REGIMEN
     Dosage: 6.4 MG/KG

REACTIONS (10)
  - Infection [Fatal]
  - Respiratory distress [Fatal]
  - Cardiotoxicity [Fatal]
  - Laryngeal haemorrhage [Fatal]
  - Urinary bladder haemorrhage [Fatal]
  - Venoocclusive disease [Fatal]
  - Cardio-respiratory arrest [Fatal]
  - Cardiac failure [Fatal]
  - Multiple organ dysfunction syndrome [Fatal]
  - Pulmonary toxicity [Fatal]

NARRATIVE: CASE EVENT DATE: 201803
